FAERS Safety Report 8179787-0 (Version None)
Quarter: 2012Q1

REPORT INFORMATION
  Report Type: 
  Country: None (occurrence: None)
  Receive Date: 20120302
  Receipt Date: 20120221
  Transmission Date: 20120608
  Serious: No
  Sender: FDA-Public Use
  Company Number: US-B.I. PHARMACEUTICALS,INC./RIDGEFIELD-2012-BP-03266BP

PATIENT
  Sex: Male

DRUGS (11)
  1. LORAZEPAM [Concomitant]
     Indication: ANXIETY
     Route: 048
  2. VITAMIN B COMPLEX CAP [Concomitant]
     Indication: PROPHYLAXIS
     Route: 048
  3. ASCORBIC ACID [Concomitant]
     Indication: PROPHYLAXIS
     Route: 048
  4. PRADAXA [Suspect]
     Indication: ATRIAL FIBRILLATION
     Dosage: 150 MG
     Route: 048
     Dates: start: 20120110
  5. ATENOLOL [Concomitant]
     Indication: HYPERTENSION
     Dosage: 25 MG
     Route: 048
  6. LOSARTAN POTASSIUM [Concomitant]
     Indication: HYPERTENSION
     Dosage: 25 MG
     Route: 048
  7. JOINT ADVANTAGE GOLD [Concomitant]
     Indication: PROPHYLAXIS
     Route: 048
  8. VITAMIN D-3 COMPLEX [Concomitant]
     Indication: PROPHYLAXIS
     Route: 048
  9. MAGNESIUM [Concomitant]
     Indication: PROPHYLAXIS
     Route: 048
  10. GINKGO BILOBA [Concomitant]
     Indication: TINNITUS
     Route: 048
  11. OMEGA 3-COMPLEX [Concomitant]
     Indication: PROPHYLAXIS
     Route: 048

REACTIONS (6)
  - ORAL HERPES [None]
  - RASH [None]
  - GENITAL RASH [None]
  - ABDOMINAL PAIN UPPER [None]
  - GROIN PAIN [None]
  - HAEMOPTYSIS [None]
